FAERS Safety Report 10100785 (Version 2)
Quarter: 2014Q2

REPORT INFORMATION
  Report Type: Spontaneous
  Country: CA (occurrence: CA)
  Receive Date: 20140423
  Receipt Date: 20140423
  Transmission Date: 20141212
  Serious: Yes (Disabling)
  Sender: FDA-Public Use
  Company Number: PHHY2014CA046605

PATIENT
  Age: 91 Year
  Sex: Female

DRUGS (21)
  1. ACLASTA [Suspect]
     Indication: OSTEOPOROSIS
     Dosage: 5 MG, YEARLY
     Route: 042
     Dates: start: 2010
  2. ACLASTA [Suspect]
     Dosage: 5 MG, YEARLY
     Route: 042
     Dates: start: 2011
  3. ACLASTA [Suspect]
     Dosage: 5 MG, YEARLY
     Route: 042
     Dates: start: 2012
  4. ACLASTA [Suspect]
     Dosage: 5 MG, YEARLY
     Route: 042
     Dates: start: 2013
  5. ACLASTA [Suspect]
     Dosage: 5 MG, YEARLY
     Route: 042
     Dates: start: 20140403
  6. VITAMIN D3 [Concomitant]
     Dosage: UNK UKN, UNK
  7. ASA [Concomitant]
     Dosage: 81 MG, QD
  8. FUROSEMIDE [Concomitant]
     Dosage: 20 MG, QD
  9. SYNTHROID [Concomitant]
     Dosage: 0.137 MG, QD
  10. SIMVASTATIN [Concomitant]
     Dosage: 20 MG, QD
  11. ALTACE [Concomitant]
     Dosage: 5 MG, QD
  12. SERTRALINE [Concomitant]
     Dosage: 100 MG, QD
  13. ADALAT XL [Concomitant]
     Dosage: 60 MG, QD
  14. OMEPRAZOLE [Concomitant]
     Dosage: 20 MG, BID
  15. METOPROLOL [Concomitant]
     Dosage: 50 MG, BID
  16. DOMPERIDONE [Concomitant]
     Dosage: 10 MG, TID
  17. VITAMIIN C [Concomitant]
     Dosage: 500 MG, QD
  18. VITAMIN D [Concomitant]
     Dosage: 1000 IU, QD
  19. HYDROMORPHONE [Concomitant]
     Dosage: 9 MG, BID
  20. HYDROMORPHONE [Concomitant]
     Dosage: 3 MG, Q4H PRN
  21. TYLENOL [Concomitant]
     Dosage: 500 MG, BID

REACTIONS (8)
  - Joint range of motion decreased [Unknown]
  - Arthropathy [Recovering/Resolving]
  - Muscular weakness [Recovering/Resolving]
  - Back pain [Recovering/Resolving]
  - Pain in extremity [Recovering/Resolving]
  - Incorrect drug administration duration [Unknown]
  - Blood creatinine increased [Unknown]
  - Arthralgia [Unknown]
